FAERS Safety Report 5129836-9 (Version None)
Quarter: 2006Q4

REPORT INFORMATION
  Report Type: 
  Country: None (occurrence: None)
  Receive Date: 20061018
  Receipt Date: 20060804
  Transmission Date: 20070319
  Serious: Yes (Hospitalization, Other)
  Sender: FDA-Public Use
  Company Number: PHFR2006GB02442

PATIENT
  Age: 75 Year
  Sex: Male

DRUGS (3)
  1. ZOMETA [Suspect]
     Indication: MULTIPLE MYELOMA
     Dosage: 4MG
     Route: 042
     Dates: start: 20030101, end: 20050101
  2. THALIDOMIDE [Concomitant]
     Indication: MULTIPLE MYELOMA
     Dosage: 100 MG, QD
     Route: 065
  3. ACYCLOVIR [Concomitant]
     Indication: HERPES ZOSTER
     Dosage: 400 MG, BID
     Route: 065

REACTIONS (2)
  - JAW LESION EXCISION [None]
  - OSTEONECROSIS [None]
